FAERS Safety Report 14312253 (Version 1)
Quarter: 2017Q4

REPORT INFORMATION
  Report Type: Spontaneous
  Country: CH (occurrence: CH)
  Receive Date: 20171221
  Receipt Date: 20171221
  Transmission Date: 20180321
  Serious: Yes (Hospitalization)
  Sender: FDA-Public Use
  Company Number: CH-009507513-1712CHE007734

PATIENT
  Age: 50 Year
  Sex: Male

DRUGS (13)
  1. PHOSCAP [Concomitant]
     Dosage: 1 TABLET, THRICE DAILY
     Route: 048
  2. ISOSOURCE STANDARD [Concomitant]
     Dosage: UNK
  3. NEXIUM [Concomitant]
     Active Substance: ESOMEPRAZOLE MAGNESIUM
     Dosage: 40 MG, UNK
     Route: 054
  4. PRIMPERAN [Concomitant]
     Active Substance: METOCLOPRAMIDE HYDROCHLORIDE
     Dosage: 10 MG, MAX THRICE DAILY
     Route: 054
  5. MST (MORPHINE SULFATE) [Concomitant]
     Dosage: 30 MG, THRICE DAILY
  6. ZOLPIDEM [Concomitant]
     Active Substance: ZOLPIDEM\ZOLPIDEM TARTRATE
     Dosage: 10 MG, ONCE DAILY
  7. KEYTRUDA [Suspect]
     Active Substance: PEMBROLIZUMAB
     Indication: NEOPLASM MALIGNANT
     Dosage: 200 MG, Q3W
     Route: 041
     Dates: start: 20171005, end: 20171116
  8. CALCIMAGON [Concomitant]
     Active Substance: CALCIUM
     Dosage: UNK, QD
  9. TORSEMIDE. [Concomitant]
     Active Substance: TORSEMIDE
     Dosage: 10 MG, ONCE DAILY
  10. LAXOBERON [Concomitant]
     Active Substance: SODIUM PICOSULFATE
     Dosage: 10-15 DROPS DAILY
     Route: 054
  11. MOVICOL [Concomitant]
     Active Substance: POLYETHYLENE GLYCOL 3350\POTASSIUM CHLORIDE\SODIUM BICARBONATE\SODIUM CHLORIDE
     Dosage: UNK, QD
  12. MORPHINE [Concomitant]
     Active Substance: MORPHINE
     Dosage: 3 ML, MAX SIX TIMES DAILY
  13. OXYGEN. [Concomitant]
     Active Substance: OXYGEN
     Dosage: 1 L/MIN, UNK

REACTIONS (5)
  - Dyspnoea [Not Recovered/Not Resolved]
  - Pericardial effusion [Not Recovered/Not Resolved]
  - Oedema peripheral [Not Recovered/Not Resolved]
  - Pyrexia [Not Recovered/Not Resolved]
  - Pleural effusion [Not Recovered/Not Resolved]

NARRATIVE: CASE EVENT DATE: 201710
